FAERS Safety Report 8519127-8 (Version None)
Quarter: 2012Q3

REPORT INFORMATION
  Report Type: 
  Country: None (occurrence: None)
  Receive Date: 20120709
  Receipt Date: 20120623
  Transmission Date: 20120928
  Serious: Yes (Other)
  Sender: FDA-Public Use
  Company Number: JPI-P-017996

PATIENT
  Age: 31 Year
  Sex: Female
  Weight: 90.7194 kg

DRUGS (19)
  1. XYREM [Suspect]
     Indication: SLEEP DISORDER
     Dosage: SEE IMAGE: ORAL
     Route: 048
     Dates: start: 20111109, end: 20110101
  2. XYREM [Suspect]
     Indication: NARCOLEPSY
     Dosage: SEE IMAGE: ORAL
     Route: 048
     Dates: start: 20111109, end: 20110101
  3. XYREM [Suspect]
     Indication: SLEEP APNOEA SYNDROME
     Dosage: SEE IMAGE: ORAL
     Route: 048
     Dates: start: 20111109, end: 20110101
  4. XYREM [Suspect]
     Indication: SLEEP DISORDER
     Dosage: SEE IMAGE: ORAL
     Route: 048
     Dates: start: 20111222, end: 20111226
  5. XYREM [Suspect]
     Indication: NARCOLEPSY
     Dosage: SEE IMAGE: ORAL
     Route: 048
     Dates: start: 20111222, end: 20111226
  6. XYREM [Suspect]
     Indication: SLEEP APNOEA SYNDROME
     Dosage: SEE IMAGE: ORAL
     Route: 048
     Dates: start: 20111222, end: 20111226
  7. XYREM [Suspect]
     Indication: SLEEP DISORDER
     Dosage: SEE IMAGE: ORAL
     Route: 048
     Dates: start: 20120110, end: 20120101
  8. XYREM [Suspect]
     Indication: NARCOLEPSY
     Dosage: SEE IMAGE: ORAL
     Route: 048
     Dates: start: 20120110, end: 20120101
  9. XYREM [Suspect]
     Indication: SLEEP APNOEA SYNDROME
     Dosage: SEE IMAGE: ORAL
     Route: 048
     Dates: start: 20120110, end: 20120101
  10. XYREM [Suspect]
     Indication: SLEEP DISORDER
     Dosage: SEE IMAGE: ORAL
     Route: 048
     Dates: start: 20120101
  11. XYREM [Suspect]
     Indication: NARCOLEPSY
     Dosage: SEE IMAGE: ORAL
     Route: 048
     Dates: start: 20120101
  12. XYREM [Suspect]
     Indication: SLEEP APNOEA SYNDROME
     Dosage: SEE IMAGE: ORAL
     Route: 048
     Dates: start: 20120101
  13. XYREM [Suspect]
     Indication: SLEEP DISORDER
     Dosage: SEE IMAGE: ORAL
     Route: 048
     Dates: start: 20111027, end: 20111108
  14. XYREM [Suspect]
     Indication: NARCOLEPSY
     Dosage: SEE IMAGE: ORAL
     Route: 048
     Dates: start: 20111027, end: 20111108
  15. XYREM [Suspect]
     Indication: SLEEP APNOEA SYNDROME
     Dosage: SEE IMAGE: ORAL
     Route: 048
     Dates: start: 20111027, end: 20111108
  16. XYREM [Suspect]
     Indication: SLEEP DISORDER
     Dosage: SEE IMAGE: ORAL
     Route: 048
     Dates: start: 20110101, end: 20111221
  17. XYREM [Suspect]
     Indication: NARCOLEPSY
     Dosage: SEE IMAGE: ORAL
     Route: 048
     Dates: start: 20110101, end: 20111221
  18. XYREM [Suspect]
     Indication: SLEEP APNOEA SYNDROME
     Dosage: SEE IMAGE: ORAL
     Route: 048
     Dates: start: 20110101, end: 20111221
  19. BUPRENORPHINE HCL W/NALOXONE HCL [Concomitant]

REACTIONS (7)
  - FEELING JITTERY [None]
  - TACHYCARDIA [None]
  - MUSCLE TWITCHING [None]
  - NIGHTMARE [None]
  - NECK PAIN [None]
  - INTERVERTEBRAL DISC PROTRUSION [None]
  - ANXIETY [None]
